FAERS Safety Report 5673219-X (Version None)
Quarter: 2008Q2

REPORT INFORMATION
  Report Type: 
  Country: None (occurrence: None)
  Receive Date: 20080219
  Receipt Date: 20071210
  Transmission Date: 20081010
  Serious: No
  Sender: FDA-Public Use
  Company Number: TPA2007A02484

PATIENT
  Age: 62 Year
  Sex: Female
  Weight: 77.1115 kg

DRUGS (4)
  1. ROZEREM [Suspect]
     Indication: INSOMNIA
     Dosage: 8 MG, QHS, PER ORAL
     Route: 048
     Dates: start: 20071108, end: 20071115
  2. LEVOXYL [Concomitant]
  3. PREMARIN [Concomitant]
  4. SULINDAC [Concomitant]

REACTIONS (2)
  - MIDDLE INSOMNIA [None]
  - POLLAKIURIA [None]
